FAERS Safety Report 18717166 (Version 1)
Quarter: 2021Q1

REPORT INFORMATION
  Report Type: Spontaneous
  Country: US (occurrence: US)
  Receive Date: 20210108
  Receipt Date: 20210108
  Transmission Date: 20210419
  Serious: Yes (Death, Hospitalization)
  Sender: FDA-Public Use
  Company Number: US-ALVOGEN-2021-ALVOGEN-115935

PATIENT
  Age: 61 Year
  Sex: Female

DRUGS (4)
  1. ACETAMINOPHEN. [Suspect]
     Active Substance: ACETAMINOPHEN
     Indication: SUICIDE ATTEMPT
     Dosage: INGST+ PAR
  2. HYDROCODONE BITARTRATE AND ACETAMINOPHEN [Suspect]
     Active Substance: ACETAMINOPHEN\HYDROCODONE BITARTRATE
     Indication: SUICIDE ATTEMPT
  3. BUSPIRONE [Suspect]
     Active Substance: BUSPIRONE HYDROCHLORIDE
     Indication: SUICIDE ATTEMPT
     Dosage: INGST+ PAR
  4. INSULIN [Suspect]
     Active Substance: INSULIN NOS
     Indication: SUICIDE ATTEMPT
     Dosage: INGST+ PAR

REACTIONS (1)
  - Completed suicide [Fatal]
